FAERS Safety Report 5020223-0 (Version None)
Quarter: 2006Q2

REPORT INFORMATION
  Report Type: 
  Country: None (occurrence: None)
  Receive Date: 20060601
  Receipt Date: 20060517
  Transmission Date: 20061013
  Serious: Yes (Other)
  Sender: FDA-Public Use
  Company Number: A-JP2006-12370

PATIENT
  Age: 33 Year
  Sex: Female
  Weight: 44 kg

DRUGS (11)
  1. TRACLEER [Suspect]
     Indication: PULMONARY HYPERTENSION
     Dosage: 15.625 MG QD ORAL
     Route: 048
     Dates: start: 20050816, end: 20050817
  2. EPOPROSTENOL SODIUM [Concomitant]
  3. METILDIGOXIN [Concomitant]
  4. BENEXATE HYDROCHLORIDE [Concomitant]
  5. SPIRONOLACTONE [Concomitant]
  6. FUROSEMIDE [Concomitant]
  7. METOCLOR (METOCLOPRAMIDE HYDROCHLORIDE) [Concomitant]
  8. LEVOTHYROXINE SODIUM [Concomitant]
  9. TORSEMIDE [Concomitant]
  10. ASCORBIC ACID [Concomitant]
  11. CALCIUM PANTOTHENATE [Concomitant]

REACTIONS (5)
  - ALANINE AMINOTRANSFERASE INCREASED [None]
  - ASPARTATE AMINOTRANSFERASE INCREASED [None]
  - BLOOD BILIRUBIN INCREASED [None]
  - LIVER FUNCTION TEST ABNORMAL [None]
  - NAUSEA [None]
